FAERS Safety Report 22765216 (Version 4)
Quarter: 2024Q1

REPORT INFORMATION
  Report Type: Report from Study
  Country: US (occurrence: US)
  Receive Date: 20230731
  Receipt Date: 20240102
  Transmission Date: 20240410
  Serious: No
  Sender: FDA-Public Use
  Company Number: US-DECIPHERA PHARMACEUTICALS LLC-2023US000671

PATIENT
  Age: 80 Year
  Sex: Female

DRUGS (3)
  1. QINLOCK [Suspect]
     Active Substance: RIPRETINIB
     Indication: Gastrointestinal stromal tumour
     Dosage: 150 MILLIGRAM, QD
     Route: 048
     Dates: start: 20221201
  2. QINLOCK [Suspect]
     Active Substance: RIPRETINIB
     Dosage: 100 MILLIGRAM, QD
     Route: 048
  3. QINLOCK [Suspect]
     Active Substance: RIPRETINIB
     Dosage: 100 MILLIGRAM, QD
     Route: 048
     Dates: start: 202305

REACTIONS (8)
  - Adverse event [Unknown]
  - Acne [Unknown]
  - Toothache [Unknown]
  - Dizziness [Unknown]
  - Rash [Unknown]
  - Alopecia [Unknown]
  - Dry skin [Unknown]
  - Intentional underdose [Unknown]

NARRATIVE: CASE EVENT DATE: 20230726
